FAERS Safety Report 9426513 (Version 2)
Quarter: 2013Q3

REPORT INFORMATION
  Report Type: Spontaneous
  Country: AU (occurrence: AU)
  Receive Date: 20130730
  Receipt Date: 20130820
  Transmission Date: 20140515
  Serious: Yes (Death)
  Sender: FDA-Public Use
  Company Number: AU-B.I. PHARMACEUTICALS,INC./RIDGEFIELD-2013-AU-00917AU

PATIENT
  Age: 83 Year
  Sex: Male
  Weight: 89 kg

DRUGS (7)
  1. PRADAXA [Suspect]
     Indication: CEREBROVASCULAR ACCIDENT PROPHYLAXIS
     Dosage: 220 MG
     Dates: start: 20110921
  2. PRADAXA [Suspect]
     Indication: ATRIAL FIBRILLATION
  3. ATENOLOL [Concomitant]
     Dosage: 50 MG
  4. ATENOLOL [Concomitant]
     Dosage: 25 MG
  5. COVERSYL [Concomitant]
     Dosage: 5 MG
  6. DIGOXIN [Concomitant]
     Dosage: 187.5 MCG
  7. GTN SPRAY [Concomitant]

REACTIONS (2)
  - Upper gastrointestinal haemorrhage [Fatal]
  - Haematemesis [Fatal]
